FAERS Safety Report 6647403-2 (Version None)
Quarter: 2010Q1

REPORT INFORMATION
  Report Type: 
  Country: None (occurrence: None)
  Receive Date: 20100322
  Receipt Date: 20100322
  Transmission Date: 20100710
  Serious: No
  Sender: FDA-Public Use
  Company Number: None

PATIENT
  Age: 80 Year
  Sex: Male
  Weight: 90.3 kg

DRUGS (1)
  1. IODIXANOL [Suspect]
     Indication: ANGIOGRAM
     Dosage: 320 MG ONCE IV
     Route: 042
     Dates: start: 20091204, end: 20091204

REACTIONS (4)
  - ANGIOEDEMA [None]
  - EYE SWELLING [None]
  - PRURITUS [None]
  - RASH [None]
